FAERS Safety Report 10166765 (Version 1)
Quarter: 2014Q2

REPORT INFORMATION
  Report Type: Spontaneous
  Country: US (occurrence: US)
  Receive Date: 20140512
  Receipt Date: 20140512
  Transmission Date: 20141212
  Serious: Yes (Other)
  Sender: FDA-Public Use
  Company Number: US-SA-2014SA058433

PATIENT
  Age: 62 Year
  Sex: Male

DRUGS (5)
  1. LANTUS [Suspect]
     Indication: DIABETES MELLITUS
     Dosage: DOSE:40 UNIT(S)
     Route: 058
     Dates: start: 2009
  2. LANTUS [Suspect]
     Indication: DIABETES MELLITUS
     Dosage: DOSE:30 UNIT(S)
     Route: 058
  3. LANTUS [Suspect]
     Indication: DIABETES MELLITUS
     Dosage: DOSE:20 UNIT(S)
     Route: 058
  4. HUMALOG [Suspect]
     Indication: DIABETES MELLITUS
     Route: 065
     Dates: end: 2012
  5. METFORMIN [Suspect]
     Indication: DIABETES MELLITUS
     Route: 065

REACTIONS (2)
  - Sepsis [Unknown]
  - Drug administration error [Unknown]
